FAERS Safety Report 4461245-8 (Version None)
Quarter: 2004Q3

REPORT INFORMATION
  Report Type: 
  Country: None (occurrence: None)
  Receive Date: 20040928
  Receipt Date: 20040913
  Transmission Date: 20050211
  Serious: Yes (Death)
  Sender: FDA-Public Use
  Company Number: PH-ROCHE-380512

PATIENT
  Age: 58 Year
  Sex: Female

DRUGS (2)
  1. CAPECITABINE [Suspect]
     Indication: BREAST CANCER
     Route: 048
     Dates: start: 20040709, end: 20040827
  2. IXABEPILONE [Concomitant]
     Indication: BREAST CANCER
     Route: 042
     Dates: start: 20040709, end: 20040820

REACTIONS (15)
  - DIARRHOEA [None]
  - DISSEMINATED INTRAVASCULAR COAGULATION [None]
  - DYSPNOEA [None]
  - GINGIVAL BLEEDING [None]
  - HAEMOPTYSIS [None]
  - HYPOTENSION [None]
  - INFECTION IN AN IMMUNOCOMPROMISED HOST [None]
  - MALAISE [None]
  - MUCOSAL INFLAMMATION [None]
  - PNEUMONIA [None]
  - PULMONARY CONGESTION [None]
  - PYREXIA [None]
  - SEPSIS [None]
  - SOMNOLENCE [None]
  - TACHYCARDIA [None]
